FAERS Safety Report 12142614 (Version 1)
Quarter: 2016Q1

REPORT INFORMATION
  Report Type: Report from Study
  Country: JP (occurrence: JP)
  Receive Date: 20160303
  Receipt Date: 20160303
  Transmission Date: 20160526
  Serious: Yes (Death, Life-Threatening, Hospitalization)
  Sender: FDA-Public Use
  Company Number: JP-PFIZER INC-2010028035

PATIENT
  Age: 57 Year
  Sex: Female
  Weight: 44 kg

DRUGS (10)
  1. MOHRUS [Concomitant]
     Active Substance: KETOPROFEN
     Indication: RHEUMATOID ARTHRITIS
     Dosage: 1 DF, 1X/DAY
     Route: 062
     Dates: start: 20080228, end: 20100302
  2. DEPAS [Concomitant]
     Active Substance: ETIZOLAM
     Indication: INSOMNIA
     Dosage: 0.5 MG, AS NEEDED
     Route: 048
     Dates: start: 20090219
  3. TOFACITINIB/TOFACITINIB CITRATE [Suspect]
     Active Substance: TOFACITINIB
     Indication: RHEUMATOID ARTHRITIS
     Dosage: 5 MG, 2X/DAY
     Route: 048
     Dates: start: 20080725, end: 20100302
  4. LOXONIN [Concomitant]
     Active Substance: LOXOPROFEN SODIUM
     Indication: RHEUMATOID ARTHRITIS
     Dosage: 180 MG, 1X/DAY
     Route: 048
     Dates: start: 20041124
  5. ISODINE [Concomitant]
     Active Substance: POVIDONE-IODINE
     Indication: PROPHYLAXIS
     Dosage: UNIT DOSE: 3
     Route: 049
     Dates: start: 20080108, end: 20100302
  6. METHOTREXATE SODIUM. [Suspect]
     Active Substance: METHOTREXATE SODIUM
     Indication: RHEUMATOID ARTHRITIS
     Dosage: 10 MG, WEEKLY
     Route: 048
     Dates: start: 20070704, end: 20100225
  7. FOLIAMIN [Suspect]
     Active Substance: FOLIC ACID
     Indication: RHEUMATOID ARTHRITIS
     Dosage: 5 MG, WEEKLY
     Route: 048
     Dates: start: 20080229, end: 20100226
  8. PURSENNID [Concomitant]
     Active Substance: SENNOSIDES A AND B
     Indication: CONSTIPATION
     Dosage: UNK
     Route: 048
     Dates: start: 20100118, end: 20100302
  9. PARIET [Concomitant]
     Active Substance: RABEPRAZOLE SODIUM
     Indication: PROPHYLAXIS AGAINST GASTROINTESTINAL ULCER
     Dosage: 10 MG, 1X/DAY
     Route: 048
     Dates: start: 20090515, end: 20100302
  10. BIOFERMIN R [Concomitant]
     Active Substance: BACILLUS SUBTILIS\LACTOBACILLUS ACIDOPHILUS\STREPTOCOCCUS FAECAIS
     Indication: CONSTIPATION
     Dosage: 3 G, 1X/DAY
     Route: 048
     Dates: start: 20100118, end: 20100302

REACTIONS (28)
  - Leiomyosarcoma [None]
  - Vomiting [None]
  - Ovarian cancer [Fatal]
  - Anaemia [None]
  - Fall [None]
  - Alopecia [None]
  - Malignant pleural effusion [Fatal]
  - Diarrhoea [None]
  - Delirium [None]
  - Fallopian tube enlargement [None]
  - Nausea [None]
  - Hallucination [None]
  - Dehydration [None]
  - Feeling hot [None]
  - Back pain [None]
  - Mesenteric neoplasm [Fatal]
  - Sinus tachycardia [None]
  - Ascites [None]
  - Neutrophil count decreased [None]
  - Pleural effusion [None]
  - Uterine leiomyoma [None]
  - Abdominal pain upper [None]
  - Pleural fibrosis [None]
  - Metastases to lymph nodes [Fatal]
  - Malignant ascites [Fatal]
  - Bone marrow failure [None]
  - Endometrial adenocarcinoma [None]
  - Bacterial infection [None]

NARRATIVE: CASE EVENT DATE: 20100301
